FAERS Safety Report 15798862 (Version 1)
Quarter: 2019Q1

REPORT INFORMATION
  Report Type: Spontaneous
  Country: IN (occurrence: IN)
  Receive Date: 20190108
  Receipt Date: 20190108
  Transmission Date: 20190417
  Serious: Yes (Other)
  Sender: FDA-Public Use
  Company Number: IN-JNJFOC-20190107430

PATIENT
  Age: 17 Year
  Sex: Male

DRUGS (1)
  1. TRAMADOL HYDROCHLORIDE. [Suspect]
     Active Substance: TRAMADOL HYDROCHLORIDE
     Indication: DRUG WITHDRAWAL SYNDROME
     Dosage: IN DIVIDED DOSES
     Route: 065

REACTIONS (2)
  - Pica [Recovered/Resolved]
  - Drug use disorder [Unknown]
